FAERS Safety Report 9803326 (Version 4)
Quarter: 2014Q1

REPORT INFORMATION
  Report Type: Report from Study
  Country: US (occurrence: US)
  Receive Date: 20140108
  Receipt Date: 20140325
  Transmission Date: 20141002
  Serious: Yes (Hospitalization)
  Sender: FDA-Public Use
  Company Number: US-SA-2013SA117554

PATIENT
  Age: 65 Year
  Sex: Female
  Weight: 84.4 kg

DRUGS (4)
  1. AUBAGIO [Suspect]
     Indication: MULTIPLE SCLEROSIS
     Route: 048
     Dates: start: 20130925, end: 201311
  2. AUBAGIO [Suspect]
     Indication: MULTIPLE SCLEROSIS
     Route: 048
     Dates: start: 20131103, end: 20140213
  3. BENADRYL [Concomitant]
  4. OXYBUTYNIN [Concomitant]

REACTIONS (10)
  - Convulsion [Unknown]
  - Pruritus [Recovering/Resolving]
  - Pain [Unknown]
  - Constipation [Unknown]
  - Asthenia [Not Recovered/Not Resolved]
  - Fall [Unknown]
  - Faeces hard [Unknown]
  - Dehydration [Unknown]
  - Abdominal pain upper [Unknown]
  - Drug dose omission [Unknown]
